FAERS Safety Report 25450831 (Version 8)
Quarter: 2025Q4

REPORT INFORMATION
  Report Type: Report from Study
  Country: US (occurrence: US)
  Receive Date: 20250618
  Receipt Date: 20251015
  Transmission Date: 20260118
  Serious: No
  Sender: MALLINCKRODT
  Company Number: US-MALLINCKRODT-MNK202503703

PATIENT
  Age: 66 Year
  Sex: Female

DRUGS (5)
  1. CORTICOTROPIN [Suspect]
     Active Substance: CORTICOTROPIN
     Indication: Polymyositis
     Dosage: 80 UNITS
     Route: 058
     Dates: start: 202506, end: 2025
  2. CORTICOTROPIN [Suspect]
     Active Substance: CORTICOTROPIN
     Dates: start: 2025, end: 2025
  3. CORTICOTROPIN [Suspect]
     Active Substance: CORTICOTROPIN
     Dosage: 80 UNITS (RESUMED)
     Route: 058
     Dates: start: 2025, end: 2025
  4. CORTICOTROPIN [Suspect]
     Active Substance: CORTICOTROPIN
     Dosage: 80 UNITS
     Route: 058
     Dates: start: 2025, end: 2025
  5. CORTICOTROPIN [Suspect]
     Active Substance: CORTICOTROPIN
     Dosage: 80 UNITS
     Route: 058
     Dates: start: 2025

REACTIONS (9)
  - Illness [Unknown]
  - Blood pressure increased [Unknown]
  - Thinking abnormal [Unknown]
  - Enzyme level increased [Unknown]
  - Laboratory test abnormal [Unknown]
  - Abdominal discomfort [Unknown]
  - Vomiting [Unknown]
  - Drug intolerance [Unknown]
  - Asthenia [Unknown]

NARRATIVE: CASE EVENT DATE: 20241201
